FAERS Safety Report 9173752 (Version 1)
Quarter: 2013Q1

REPORT INFORMATION
  Report Type: Spontaneous
  Country: GB (occurrence: GB)
  Receive Date: 20130320
  Receipt Date: 20130320
  Transmission Date: 20140127
  Serious: Yes (Hospitalization, Other)
  Sender: FDA-Public Use
  Company Number: GB-JNJFOC-2001039258GB

PATIENT
  Age: 75 Year
  Sex: Female

DRUGS (8)
  1. MOTRIN [Suspect]
     Indication: NECK PAIN
     Dosage: FREQUENCY TEXT: QD DAILY DOSE TEXT: 400 MILLIGRAM, QD DAILY DOSE QTY: 400 MG
     Route: 048
     Dates: start: 20000128, end: 20000131
  2. VALSARTAN [Suspect]
     Indication: HYPERTENSION
     Dosage: FREQUENCY TEXT: QD DAILY DOSE TEXT: 80 MILLIGRAM, QD DAILY DOSE QTY: 80 MG
     Route: 048
     Dates: start: 19991110, end: 20000131
  3. BENDROFLUAZIDE [Suspect]
     Indication: HYPERTENSION
     Dosage: FREQUENCY TEXT: TID DAILY DOSE TEXT: 2.5 MILLIGRAM, TID DAILY DOSE QTY: 7.5 MG
     Route: 048
     Dates: end: 20000131
  4. PROCHLORPERAZINE [Concomitant]
     Indication: VERTIGO
     Dosage: FREQUENCY TEXT: QD DAILY DOSE TEXT: 5 MILLIGRAM, QD DAILY DOSE QTY: 5 MG
     Route: 048
     Dates: start: 19991210
  5. PARACETAMOL [Concomitant]
     Indication: BACK PAIN
     Dosage: FREQUENCY TEXT: PRN DAILY DOSE TEXT: 2/D, PRN
     Route: 048
     Dates: start: 20000128
  6. CO-CODAMOL [Concomitant]
     Indication: NECK PAIN
     Dosage: FREQUENCY TEXT: PRN DAILY DOSE TEXT: 2/D, PRN
     Route: 048
     Dates: start: 20000129, end: 20000131
  7. CIMETIDINE [Concomitant]
     Indication: PRODUCT USED FOR UNKNOWN INDICATION
     Dosage: FREQUENCY TEXT: BID DAILY DOSE TEXT: 400 MILLIGRAM, BID DAILY DOSE QTY: 800 MG
     Route: 048
     Dates: start: 199911
  8. GAVISCON LIQUID [Concomitant]
     Indication: PRODUCT USED FOR UNKNOWN INDICATION
     Dosage: FREQUENCY TEXT: PRN DAILY DOSE TEXT: 10 MILLILITERS, PRN DAILY DOSE QTY: 10 MILLILITERS
     Route: 048
     Dates: start: 1993

REACTIONS (5)
  - Convulsion [Recovered/Resolved]
  - Pneumonia aspiration [Recovered/Resolved]
  - Hyponatraemia [Recovered/Resolved]
  - Hypertension [Recovered/Resolved]
  - Cerebral infarction [Recovered/Resolved]
